FAERS Safety Report 7522491-X (Version None)
Quarter: 2011Q2

REPORT INFORMATION
  Report Type: 
  Country: None (occurrence: None)
  Receive Date: 20110603
  Receipt Date: 20110526
  Transmission Date: 20111010
  Serious: Yes (Hospitalization)
  Sender: FDA-Public Use
  Company Number: JP-ROCHE-779070

PATIENT
  Age: 68 Year
  Sex: Male

DRUGS (3)
  1. PREDNISOLONE [Concomitant]
     Dosage: FORM: PERORAL AGENT
     Route: 048
     Dates: start: 20110506
  2. ACTEMRA [Suspect]
     Indication: RHEUMATOID ARTHRITIS
     Dosage: DOSAGE IS UNCERTAIN.
     Route: 041
     Dates: start: 20110506
  3. AZULFIDINE [Concomitant]
     Route: 048
     Dates: start: 20110506

REACTIONS (4)
  - BLOOD PRESSURE DECREASED [None]
  - ABDOMINAL PAIN [None]
  - ERYTHEMA NODOSUM [None]
  - STILL'S DISEASE ADULT ONSET [None]
